FAERS Safety Report 5309275-8 (Version None)
Quarter: 2007Q2

REPORT INFORMATION
  Report Type: 
  Country: None (occurrence: None)
  Receive Date: 20070427
  Receipt Date: 20070417
  Transmission Date: 20071010
  Serious: Yes (Life-Threatening)
  Sender: FDA-Public Use
  Company Number: JP-ROCHE-491727

PATIENT
  Age: 13 Year
  Sex: Male
  Weight: 38 kg

DRUGS (3)
  1. TAMIFLU [Suspect]
     Dosage: DOSE FORM: DRY SYRUP.
     Route: 048
     Dates: start: 20060706, end: 20060706
  2. TAMIFLU [Suspect]
     Dosage: DOSE FORM: DRY SYRUP.
     Route: 048
     Dates: start: 20060707, end: 20060707
  3. SOLANTAL [Concomitant]
     Route: 048
     Dates: start: 20060706

REACTIONS (1)
  - RESTLESSNESS [None]
